FAERS Safety Report 13558360 (Version 2)
Quarter: 2017Q2

REPORT INFORMATION
  Report Type: Spontaneous
  Country: US (occurrence: US)
  Receive Date: 20170518
  Receipt Date: 20170604
  Transmission Date: 20170830
  Serious: No
  Sender: FDA-Public Use
  Company Number: US-009507513-1705USA008242

PATIENT
  Age: 34 Year
  Sex: Female

DRUGS (26)
  1. ESMOLOL HYDROCHLORIDE. [Concomitant]
     Active Substance: ESMOLOL HYDROCHLORIDE
     Dosage: 50 MG, UNK; DURING 2ND ECT TREATMENT
  2. ESMOLOL HYDROCHLORIDE. [Concomitant]
     Active Substance: ESMOLOL HYDROCHLORIDE
     Dosage: 60 MG, UNK; DURING 4TH ECT TREATMENT
  3. METHOHEXITAL [Concomitant]
     Active Substance: METHOHEXITAL
     Dosage: 120 MG, UNK; DURING 2ND ECT TREATMENT
  4. METHOHEXITAL [Concomitant]
     Active Substance: METHOHEXITAL
     Dosage: 120 MG, UNK; DURING 3RD ECT TREATMENT
  5. ESMOLOL HYDROCHLORIDE. [Concomitant]
     Active Substance: ESMOLOL HYDROCHLORIDE
     Dosage: 50 MG, UNK; DURING 3RD ECT TREATMENT
  6. PROPOFOL. [Concomitant]
     Active Substance: PROPOFOL
     Indication: ANAESTHESIA
     Dosage: 50 MG, UNK; DURING 2ND ECT TREATMENT
  7. GLYCOPYRROLATE. [Concomitant]
     Active Substance: GLYCOPYRROLATE
     Dosage: 0.4 MG, UNK; DURING 2ND ECT TREATMENT
  8. ONDANSETRON [Concomitant]
     Active Substance: ONDANSETRON
     Dosage: 4 MG, UNK; DURING 2ND ECT TREATMENT
  9. ONDANSETRON [Concomitant]
     Active Substance: ONDANSETRON
     Dosage: 4 MG, UNK; DURING 4TH ECT TREATMENT
  10. SUCCINYLCHOLINE CHLORIDE. [Concomitant]
     Active Substance: SUCCINYLCHOLINE CHLORIDE
     Indication: ANAESTHESIA
     Dosage: 120 MG, UNK; DURING 1ST ECT TREATMENT
  11. SUCCINYLCHOLINE CHLORIDE. [Concomitant]
     Active Substance: SUCCINYLCHOLINE CHLORIDE
     Dosage: 120 MG, UNK; DURING 2ND ECT TREATMENT
  12. METHOHEXITAL [Concomitant]
     Active Substance: METHOHEXITAL
     Indication: INDUCTION OF ANAESTHESIA
     Dosage: 120 MG, UNK; DURING 1ST ECT TREATMENT
  13. ESMOLOL HYDROCHLORIDE. [Concomitant]
     Active Substance: ESMOLOL HYDROCHLORIDE
     Indication: ANAESTHESIA
     Dosage: 20 MG, UNK; DURING 1ST ECT TREATMENT
  14. GLYCOPYRROLATE. [Concomitant]
     Active Substance: GLYCOPYRROLATE
     Indication: ANAESTHESIA
     Dosage: 0.4 MG, UNK; DURING 1ST ECT TREATMENT
  15. PROPOFOL. [Concomitant]
     Active Substance: PROPOFOL
     Dosage: 50 MG, UNK; DURING 3RD ECT TREATMENT
  16. SUCCINYLCHOLINE CHLORIDE. [Concomitant]
     Active Substance: SUCCINYLCHOLINE CHLORIDE
     Dosage: 120 MG, UNK; DURING 4TH ECT TREATMENT
  17. PEPCID [Suspect]
     Active Substance: FAMOTIDINE
     Indication: ANAESTHESIA
     Dosage: 20 MG, UNK; DURING 4TH ECT TREATMENT
  18. GLYCOPYRROLATE. [Concomitant]
     Active Substance: GLYCOPYRROLATE
     Dosage: 0.4 MG, UNK; DURING 4TH ECT TREATMENT
  19. SUCCINYLCHOLINE CHLORIDE. [Concomitant]
     Active Substance: SUCCINYLCHOLINE CHLORIDE
     Dosage: 120 MG, UNK; DURING 3RD ECT TREATMENT
  20. SODIUM CITRATE. [Concomitant]
     Active Substance: SODIUM CITRATE
     Indication: ANAESTHESIA
     Dosage: 30 ML, UNK; DURING 1ST ECT TREATMENT
     Route: 048
  21. METHOHEXITAL [Concomitant]
     Active Substance: METHOHEXITAL
     Dosage: 120 MG, UNK; DURING 4TH ECT TREATMENT
  22. ONDANSETRON [Concomitant]
     Active Substance: ONDANSETRON
     Indication: ANAESTHESIA
     Dosage: 4 MG, UNK; DURING 1ST ECT TREATMENT
  23. PROPOFOL. [Concomitant]
     Active Substance: PROPOFOL
     Dosage: 100 MG, UNK; DURING 4TH ECT TREATMENT
  24. SODIUM CITRATE. [Concomitant]
     Active Substance: SODIUM CITRATE
     Dosage: 30 ML, UNK; DURING 4TH ECT TREATMENT
     Route: 048
  25. GLYCOPYRROLATE. [Concomitant]
     Active Substance: GLYCOPYRROLATE
     Dosage: 0.4 MG, UNK; DURING 3RD ECT TREATMENT
  26. ONDANSETRON [Concomitant]
     Active Substance: ONDANSETRON
     Dosage: 4 MG, UNK; DURING 3RD ECT TREATMENT

REACTIONS (1)
  - Exposure during pregnancy [Unknown]
